FAERS Safety Report 20607577 (Version 1)
Quarter: 2022Q1

REPORT INFORMATION
  Report Type: Spontaneous
  Country: US (occurrence: None)
  Receive Date: 20220317
  Receipt Date: 20220317
  Transmission Date: 20220423
  Serious: Yes (Hospitalization)
  Sender: FDA-Public Use
  Company Number: None

PATIENT
  Age: 59 Year
  Sex: Male
  Weight: 108.9 kg

DRUGS (2)
  1. LENALIDOMIDE [Suspect]
     Active Substance: LENALIDOMIDE
     Dates: end: 20220122
  2. VELCADE [Suspect]
     Active Substance: BORTEZOMIB
     Dates: end: 20171214

REACTIONS (5)
  - Humerus fracture [None]
  - Transitional cell carcinoma [None]
  - Metastatic neoplasm [None]
  - Pulmonary mass [None]
  - Chest pain [None]

NARRATIVE: CASE EVENT DATE: 20220211
